FAERS Safety Report 19139104 (Version 4)
Quarter: 2021Q3

REPORT INFORMATION
  Report Type: Other
  Country: KR (occurrence: KR)
  Receive Date: 20210415
  Receipt Date: 20210826
  Transmission Date: 20211014
  Serious: Yes (Hospitalization, Other)
  Sender: FDA-Public Use
  Company Number: KR-ROCHE-2806908

PATIENT
  Age: 63 Year
  Sex: Male

DRUGS (28)
  1. ATEZOLIZUMAB. [Suspect]
     Active Substance: ATEZOLIZUMAB
     Dosage: CYCLE 7
     Route: 041
     Dates: start: 20210215, end: 20210215
  2. ATEZOLIZUMAB. [Suspect]
     Active Substance: ATEZOLIZUMAB
     Dosage: CYCLE 9
     Route: 041
     Dates: start: 20210412, end: 20210412
  3. ATEZOLIZUMAB. [Suspect]
     Active Substance: ATEZOLIZUMAB
     Dosage: CYCLE 12
     Route: 041
     Dates: start: 20210614, end: 20210614
  4. ATEZOLIZUMAB. [Suspect]
     Active Substance: ATEZOLIZUMAB
     Dosage: CYCLE 14
     Route: 041
     Dates: start: 20210726, end: 20210726
  5. BEVACIZUMAB. [Suspect]
     Active Substance: BEVACIZUMAB
     Dosage: CYCLE 3
     Route: 042
     Dates: start: 20201123, end: 20201123
  6. BEVACIZUMAB. [Suspect]
     Active Substance: BEVACIZUMAB
     Dosage: CYCLE 12
     Route: 042
     Dates: start: 20210614, end: 20210614
  7. ATEZOLIZUMAB. [Suspect]
     Active Substance: ATEZOLIZUMAB
     Dosage: CYCLE 4
     Route: 041
     Dates: start: 20201214, end: 20201214
  8. ATEZOLIZUMAB. [Suspect]
     Active Substance: ATEZOLIZUMAB
     Dosage: CYCLE 10
     Route: 041
     Dates: start: 20210503, end: 20210503
  9. BEVACIZUMAB. [Suspect]
     Active Substance: BEVACIZUMAB
     Dosage: CYCLE 7
     Route: 042
     Dates: start: 20210215, end: 20210215
  10. BEVACIZUMAB. [Suspect]
     Active Substance: BEVACIZUMAB
     Dosage: CYCLE 13
     Route: 042
     Dates: start: 20210705, end: 20210705
  11. ATEZOLIZUMAB. [Suspect]
     Active Substance: ATEZOLIZUMAB
     Dosage: CYCLE 2
     Route: 041
     Dates: start: 20201102, end: 20201102
  12. BEVACIZUMAB. [Suspect]
     Active Substance: BEVACIZUMAB
     Dosage: CYCLE 8
     Route: 042
     Dates: start: 20210308, end: 20210308
  13. ATEZOLIZUMAB. [Suspect]
     Active Substance: ATEZOLIZUMAB
     Indication: HEPATOCELLULAR CARCINOMA
     Dosage: CYCLE 1
     Route: 041
     Dates: start: 20201012, end: 20201012
  14. ATEZOLIZUMAB. [Suspect]
     Active Substance: ATEZOLIZUMAB
     Dosage: CYCLE 13
     Route: 041
     Dates: start: 20210705, end: 20210705
  15. BEVACIZUMAB. [Suspect]
     Active Substance: BEVACIZUMAB
     Dosage: CYCLE 9
     Route: 042
     Dates: start: 20210412, end: 20210412
  16. ATEZOLIZUMAB. [Suspect]
     Active Substance: ATEZOLIZUMAB
     Dosage: CYCLE 6
     Route: 041
     Dates: start: 20210125, end: 20210125
  17. BEVACIZUMAB. [Suspect]
     Active Substance: BEVACIZUMAB
     Dosage: CYCLE 4
     Route: 042
     Dates: start: 20201214, end: 20201214
  18. BEVACIZUMAB. [Suspect]
     Active Substance: BEVACIZUMAB
     Dosage: CYCLE 10
     Route: 042
     Dates: start: 20210503, end: 20210503
  19. ATEZOLIZUMAB. [Suspect]
     Active Substance: ATEZOLIZUMAB
     Dosage: CYCLE 3
     Route: 041
     Dates: start: 20201123, end: 20201123
  20. BEVACIZUMAB. [Suspect]
     Active Substance: BEVACIZUMAB
     Dosage: CYCLE 6
     Route: 042
     Dates: start: 20210125, end: 20210125
  21. BEVACIZUMAB. [Suspect]
     Active Substance: BEVACIZUMAB
     Dosage: CYCLE 11
     Route: 042
     Dates: start: 20210524, end: 20210524
  22. BEVACIZUMAB. [Suspect]
     Active Substance: BEVACIZUMAB
     Dosage: CYCLE 14
     Route: 042
     Dates: start: 20210726, end: 20210726
  23. BEVACIZUMAB. [Suspect]
     Active Substance: BEVACIZUMAB
     Indication: HEPATOCELLULAR CARCINOMA
     Dosage: CYCLE 1
     Route: 042
     Dates: start: 20201012, end: 20201012
  24. BEVACIZUMAB. [Suspect]
     Active Substance: BEVACIZUMAB
     Dosage: CYCLE 2
     Route: 042
     Dates: start: 20201102, end: 20201102
  25. ATEZOLIZUMAB. [Suspect]
     Active Substance: ATEZOLIZUMAB
     Dosage: CYCLE 5
     Route: 041
     Dates: start: 20210104, end: 20210104
  26. ATEZOLIZUMAB. [Suspect]
     Active Substance: ATEZOLIZUMAB
     Dosage: CYCLE 8
     Route: 041
     Dates: start: 20210308, end: 20210308
  27. ATEZOLIZUMAB. [Suspect]
     Active Substance: ATEZOLIZUMAB
     Dosage: CYCLE 11
     Route: 041
     Dates: start: 20210524, end: 20210524
  28. BEVACIZUMAB. [Suspect]
     Active Substance: BEVACIZUMAB
     Dosage: CYCLE 5
     Route: 042
     Dates: start: 20210104, end: 20210104

REACTIONS (4)
  - Hepatic encephalopathy [Recovered/Resolved]
  - Thyroiditis [Recovering/Resolving]
  - Acute kidney injury [Recovering/Resolving]
  - Osteonecrosis [Recovered/Resolved]

NARRATIVE: CASE EVENT DATE: 20210315
